FAERS Safety Report 6167379-4 (Version None)
Quarter: 2009Q2

REPORT INFORMATION
  Report Type: 
  Country: None (occurrence: None)
  Receive Date: 20090424
  Receipt Date: 20090414
  Transmission Date: 20091009
  Serious: Yes (Hospitalization, Other)
  Sender: FDA-Public Use
  Company Number: AT-ABBOTT-09P-009-0568235-01

PATIENT
  Sex: Female
  Weight: 55 kg

DRUGS (7)
  1. HUMIRA [Suspect]
     Indication: CROHN'S DISEASE
     Route: 058
     Dates: start: 20081203, end: 20090211
  2. IMODIUM [Concomitant]
     Indication: DIARRHOEA
     Dates: start: 20020101
  3. METRONIDAZOLE [Concomitant]
     Indication: ANAL ABSCESS
     Dates: start: 20080801, end: 20081201
  4. METRONIDAZOLE [Concomitant]
     Indication: FISTULA
  5. CIPROFLOXACIN HCL [Concomitant]
     Indication: ANAL ABSCESS
     Route: 048
     Dates: start: 20080801, end: 20081201
  6. CIPROFLOXACIN HCL [Concomitant]
     Indication: FISTULA
  7. CAL-D-VITA [Concomitant]
     Indication: OSTEOPENIA
     Dates: start: 20081201

REACTIONS (2)
  - FISTULA [None]
  - SUBCUTANEOUS ABSCESS [None]
